FAERS Safety Report 21077674 (Version 1)
Quarter: 2022Q3

REPORT INFORMATION
  Report Type: Spontaneous
  Country: ES (occurrence: ES)
  Receive Date: 20220713
  Receipt Date: 20220713
  Transmission Date: 20221027
  Serious: Yes (Hospitalization)
  Sender: FDA-Public Use
  Company Number: None

PATIENT
  Age: 60 Year
  Sex: Male

DRUGS (6)
  1. OFIRMEV [Suspect]
     Active Substance: ACETAMINOPHEN
     Indication: Pain
     Dosage: 3 GRAM, QD
     Route: 042
     Dates: start: 20220510, end: 20220525
  2. PREGABALIN [Suspect]
     Active Substance: PREGABALIN
     Indication: Pain
     Dosage: 150 MILLIGRAM, QD
     Route: 048
     Dates: start: 20220510, end: 20220512
  3. METAMIZOLE [Suspect]
     Active Substance: METAMIZOLE
     Indication: Pain
     Dosage: 1725 MILLIGRAM, QD
     Route: 048
     Dates: start: 20220510, end: 20220520
  4. IBUPROFEN [Suspect]
     Active Substance: IBUPROFEN
     Indication: Pain
     Dosage: 1800 MILLIGRAM, TOTAL
     Route: 048
     Dates: start: 20220510, end: 20220524
  5. TRAMADOL [Suspect]
     Active Substance: TRAMADOL
     Indication: Pain
     Dosage: 50 MILLIGRAM, PRN
     Route: 048
     Dates: start: 20220510, end: 20220523
  6. MORPHINE HYDROCHLORIDE [Concomitant]
     Active Substance: MORPHINE HYDROCHLORIDE
     Indication: Pain
     Dosage: 4 MILLIGRAM, PRN
     Route: 058
     Dates: start: 20220510

REACTIONS (1)
  - Hyperhidrosis [Recovered/Resolved]

NARRATIVE: CASE EVENT DATE: 20220510
